FAERS Safety Report 7032941-3 (Version None)
Quarter: 2010Q4

REPORT INFORMATION
  Report Type: 
  Country: None (occurrence: None)
  Receive Date: 20101007
  Receipt Date: 20100901
  Transmission Date: 20110411
  Serious: Yes (Death, Hospitalization, Other)
  Sender: FDA-Public Use
  Company Number: US-BAYER-201019555NA

PATIENT
  Age: 34 Year
  Sex: Female
  Weight: 119 kg

DRUGS (23)
  1. YASMIN [Suspect]
     Indication: PREMENSTRUAL SYNDROME
     Route: 048
     Dates: start: 20080410, end: 20080601
  2. YAZ [Suspect]
     Indication: PREMENSTRUAL SYNDROME
  3. OCELLA [Suspect]
     Indication: PREMENSTRUAL SYNDROME
  4. SEROQUEL [Concomitant]
     Route: 048
  5. TRAZODONE HCL [Concomitant]
     Dosage: QHS
     Route: 048
  6. PROTONIX [Concomitant]
     Route: 048
  7. DIOVAN [Concomitant]
     Route: 048
  8. JANUVIA [Concomitant]
     Route: 048
  9. PROZAC [Concomitant]
     Route: 048
  10. CIPRO [Concomitant]
  11. DARVOCET-N 100 [Concomitant]
     Indication: PAIN
     Dosage: 1-2 TABLETS Q4H
  12. ZITHROMAX [Concomitant]
  13. TESSALON [Concomitant]
  14. NORMAL SALINE [Concomitant]
  15. PHENERGAN [Concomitant]
  16. DILAUDID [Concomitant]
  17. ZOFRAN [Concomitant]
  18. ALBUTEROL [Concomitant]
  19. TUSSIONEX [Concomitant]
  20. IBUPROFEN [Concomitant]
  21. IBUPROFEN [Concomitant]
  22. HALDOL [Concomitant]
  23. ROCEPHIN [Concomitant]
     Dates: end: 20080624

REACTIONS (4)
  - DEEP VEIN THROMBOSIS [None]
  - PAIN IN EXTREMITY [None]
  - PULMONARY EMBOLISM [None]
  - RESPIRATORY ARREST [None]
